FAERS Safety Report 11849596 (Version 1)
Quarter: 2015Q4

REPORT INFORMATION
  Report Type: Spontaneous
  Country: US (occurrence: None)
  Receive Date: 20151217
  Receipt Date: 20151217
  Transmission Date: 20160305
  Serious: Yes (Life-Threatening, Disabling)
  Sender: FDA-Public Use
  Company Number: None

PATIENT
  Age: 45 Year
  Sex: Female
  Weight: 74.84 kg

DRUGS (12)
  1. PARAGARD T 380A [Suspect]
     Active Substance: COPPER
     Dates: start: 20141124, end: 20150916
  2. ALOE JUICE [Concomitant]
  3. BLACK CURRANT OIL [Concomitant]
  4. MILK THISTLE [Concomitant]
     Active Substance: MILK THISTLE
  5. LYSINE [Concomitant]
     Active Substance: LYSINE
  6. VITAMIN D [Concomitant]
     Active Substance: CHOLECALCIFEROL
  7. TURMERIC [Concomitant]
     Active Substance: TURMERIC
  8. OMEGA OILS (FISH OIL) [Concomitant]
  9. TAURINE [Concomitant]
     Active Substance: TAURINE
  10. TMG [Concomitant]
  11. PAXIL [Concomitant]
     Active Substance: PAROXETINE HYDROCHLORIDE
  12. KELP [Concomitant]
     Active Substance: KELP

REACTIONS (20)
  - Polymenorrhoea [None]
  - Pruritus [None]
  - Headache [None]
  - Stress [None]
  - Alopecia [None]
  - Fatigue [None]
  - Menorrhagia [None]
  - Anxiety disorder [None]
  - Restless legs syndrome [None]
  - Frustration [None]
  - Indifference [None]
  - Agoraphobia [None]
  - Tachyphrenia [None]
  - Parosmia [None]
  - Irritability [None]
  - Depression [None]
  - Anxiety [None]
  - Insomnia [None]
  - Weight decreased [None]
  - Tinnitus [None]

NARRATIVE: CASE EVENT DATE: 20141222
